FAERS Safety Report 5907938-4 (Version None)
Quarter: 2008Q4

REPORT INFORMATION
  Report Type: 
  Country: None (occurrence: None)
  Receive Date: 20081003
  Receipt Date: 20080919
  Transmission Date: 20090506
  Serious: Yes (Other)
  Sender: FDA-Public Use
  Company Number: US-GENENTECH-261783

PATIENT
  Sex: Female

DRUGS (2)
  1. AVASTIN [Suspect]
     Indication: HAEMANGIOMA
     Dosage: 10 MG/KG, Q2W
  2. AVASTIN [Suspect]
     Indication: THROMBOCYTOPENIA

REACTIONS (1)
  - BONE LESION [None]
